FAERS Safety Report 14388682 (Version 2)
Quarter: 2018Q2

REPORT INFORMATION
  Report Type: Spontaneous
  Country: US (occurrence: US)
  Receive Date: 20180115
  Receipt Date: 20180604
  Transmission Date: 20180711
  Serious: Yes (Other)
  Sender: FDA-Public Use
  Company Number: US-SA-2017SA218331

PATIENT
  Age: 43 Year
  Sex: Female
  Weight: 136 kg

DRUGS (11)
  1. TAXOTERE [Suspect]
     Active Substance: DOCETAXEL
     Indication: BREAST CANCER FEMALE
     Dosage: 229 MG,Q3W
     Route: 051
     Dates: start: 20070117, end: 20070117
  2. NEOSAR [Concomitant]
     Active Substance: CYCLOPHOSPHAMIDE
  3. CYTOXAN [Concomitant]
     Active Substance: CYCLOPHOSPHAMIDE
     Dosage: UNK
     Dates: start: 20070322, end: 20070322
  4. HERCEPTIN [Concomitant]
     Active Substance: TRASTUZUMAB
  5. CYTOXAN [Concomitant]
     Active Substance: CYCLOPHOSPHAMIDE
     Dosage: UNK UNK, Q3W
     Dates: start: 20070117, end: 20070117
  6. MULTIVITAMINS [VITAMINS NOS] [Concomitant]
     Dosage: UNK
     Dates: start: 19830101
  7. ADRIAMYCIN [DOXORUBICIN] [Concomitant]
     Dosage: UNK
     Dates: start: 20070322, end: 20070322
  8. TOPROL XL [Concomitant]
     Active Substance: METOPROLOL SUCCINATE
     Dosage: UNK
     Dates: start: 19990101
  9. TAXOTERE [Suspect]
     Active Substance: DOCETAXEL
     Dosage: 229 MG,Q3W
     Route: 051
     Dates: start: 20070322, end: 20070322
  10. ADRIAMYCIN [DOXORUBICIN] [Concomitant]
     Dosage: UNK UNK, Q3W
     Dates: start: 20070117, end: 20070117
  11. ASPIRINE [Concomitant]
     Active Substance: ASPIRIN
     Dosage: UNK
     Dates: start: 19830101

REACTIONS (1)
  - Alopecia [Not Recovered/Not Resolved]

NARRATIVE: CASE EVENT DATE: 20070922
